FAERS Safety Report 18887033 (Version 1)
Quarter: 2021Q1

REPORT INFORMATION
  Report Type: Report from Study
  Country: US (occurrence: US)
  Receive Date: 20210212
  Receipt Date: 20210212
  Transmission Date: 20210420
  Serious: Yes (Death)
  Sender: FDA-Public Use
  Company Number: US-ASTRAZENECA-2021A036791

PATIENT
  Age: 75 Year
  Sex: Male
  Weight: 63 kg

DRUGS (15)
  1. AMIODARONE [Concomitant]
     Active Substance: AMIODARONE
  2. TAMSULOSIN [Concomitant]
     Active Substance: TAMSULOSIN
  3. BACTRIM [Concomitant]
     Active Substance: SULFAMETHOXAZOLE\TRIMETHOPRIM
  4. CARVEDILOL. [Concomitant]
     Active Substance: CARVEDILOL
  5. VITAMIN C [Concomitant]
     Active Substance: ASCORBIC ACID
  6. LASIX [Concomitant]
     Active Substance: FUROSEMIDE
  7. PREDNISONE. [Concomitant]
     Active Substance: PREDNISONE
  8. TYLENOL [Concomitant]
     Active Substance: ACETAMINOPHEN
  9. CALQUENCE [Suspect]
     Active Substance: ACALABRUTINIB
     Indication: CHRONIC LYMPHOCYTIC LEUKAEMIA
     Route: 048
     Dates: start: 20201208
  10. DIFLUCAN [Concomitant]
     Active Substance: FLUCONAZOLE
  11. MAGNESIUM OXIDE. [Concomitant]
     Active Substance: MAGNESIUM OXIDE
  12. MULTIVITAMIN [Concomitant]
     Active Substance: VITAMINS
  13. CARDURA [Concomitant]
     Active Substance: DOXAZOSIN MESYLATE
  14. VITAMIN B12 [Concomitant]
     Active Substance: CYANOCOBALAMIN
  15. PROTONIX [Concomitant]
     Active Substance: PANTOPRAZOLE SODIUM

REACTIONS (1)
  - Death [Fatal]

NARRATIVE: CASE EVENT DATE: 2021
